FAERS Safety Report 4315771-2 (Version None)
Quarter: 2004Q1

REPORT INFORMATION
  Report Type: 
  Country: None (occurrence: None)
  Receive Date: 20040310
  Receipt Date: 20040305
  Transmission Date: 20041129
  Serious: Yes (Hospitalization)
  Sender: FDA-Public Use
  Company Number: STA-AE-04-MTX-091

PATIENT
  Age: 78 Year
  Sex: Male

DRUGS (7)
  1. METHOTREXATE [Suspect]
     Indication: RHEUMATOID ARTHRITIS
     Dosage: 100 MG 1 X PER 1 WK, ORAL
     Route: 048
     Dates: start: 19990201, end: 20020801
  2. ENBREL [Suspect]
     Indication: RHEUMATOID ARTHRITIS
     Dosage: 25 MG 2 X PER 1 WK, SC
     Route: 058
     Dates: start: 20020501, end: 20020801
  3. HYDROCHLOROTHIAZIDE [Concomitant]
  4. RAMIPRIL [Concomitant]
  5. CLOPIDOGREL BISULFATE [Concomitant]
  6. METFORMIN HCL [Concomitant]
  7. PANTOLOC (PANTOPRAZOLE) [Concomitant]

REACTIONS (21)
  - ANAEMIA [None]
  - ANOREXIA [None]
  - APLASTIC ANAEMIA [None]
  - ASTHENIA [None]
  - ATRIAL FIBRILLATION [None]
  - BLOOD CREATININE INCREASED [None]
  - BONE MARROW DEPRESSION [None]
  - CONFUSIONAL STATE [None]
  - DELIRIUM [None]
  - ENTEROCOCCAL BACTERAEMIA [None]
  - ENTEROCOCCAL SEPSIS [None]
  - HYPOKALAEMIA [None]
  - MALAISE [None]
  - OEDEMA PERIPHERAL [None]
  - PANCYTOPENIA [None]
  - PNEUMONIA [None]
  - SKIN INFECTION [None]
  - STAPHYLOCOCCAL INFECTION [None]
  - TACHYCARDIA [None]
  - URINARY TRACT INFECTION [None]
  - WOUND INFECTION [None]
